FAERS Safety Report 18208239 (Version 1)
Quarter: 2020Q3

REPORT INFORMATION
  Report Type: Spontaneous
  Country: GB (occurrence: GB)
  Receive Date: 20200828
  Receipt Date: 20200828
  Transmission Date: 20201103
  Serious: Yes (Other)
  Sender: FDA-Public Use
  Company Number: GB-ACCORD-197633

PATIENT
  Age: 62 Year
  Sex: Female
  Weight: 92 kg

DRUGS (23)
  1. AMITRIPTYLINE [Suspect]
     Active Substance: AMITRIPTYLINE
     Indication: PRODUCT USED FOR UNKNOWN INDICATION
     Dates: start: 20200807
  2. RAMIPRIL. [Concomitant]
     Active Substance: RAMIPRIL
     Dates: start: 20200321
  3. PULMICORT TURBUHALER [Concomitant]
     Active Substance: BUDESONIDE
     Dosage: INHALE
     Route: 055
     Dates: start: 20200321
  4. LANSOPRAZOLE. [Concomitant]
     Active Substance: LANSOPRAZOLE
     Dates: start: 20200321
  5. ZAPAIN [Concomitant]
     Active Substance: ACETAMINOPHEN\CODEINE PHOSPHATE
     Dosage: TAKE ONE OR TWO UP TO 4 TIMES A DAY
     Dates: start: 20200521
  6. DULAGLUTIDE. [Concomitant]
     Active Substance: DULAGLUTIDE
     Dosage: USE AS DIRECTED
     Dates: start: 20200321
  7. LEVOTHYROXINE. [Concomitant]
     Active Substance: LEVOTHYROXINE
     Dates: start: 20200321
  8. LACTULOSE. [Concomitant]
     Active Substance: LACTULOSE
     Dates: start: 20200321, end: 20200527
  9. NAPROXEN. [Concomitant]
     Active Substance: NAPROXEN
     Dosage: WHEN REQUIRED
     Dates: start: 20200805
  10. PREDNISOLONE. [Concomitant]
     Active Substance: PREDNISOLONE
     Dosage: OR 5 DAYS
     Dates: start: 20200321
  11. VALPROIC ACID. [Concomitant]
     Active Substance: VALPROIC ACID
     Dosage: IN THE MORNING
     Dates: start: 20200321
  12. DOXYCYCLINE. [Concomitant]
     Active Substance: DOXYCYCLINE
     Dosage: TWO NOW THEN ONE DAILY. DO NOT TAKE AT THE SAME.
     Dates: start: 20200321
  13. SIMVASTATIN. [Concomitant]
     Active Substance: SIMVASTATIN
     Dosage: AT NIGHT
     Dates: start: 20200321
  14. BISACODYL. [Concomitant]
     Active Substance: BISACODYL
     Dosage: 1?2 AT NIGHT
     Dates: start: 20200321, end: 20200527
  15. PREGABALIN. [Concomitant]
     Active Substance: PREGABALIN
     Dates: start: 20200321
  16. RISPERIDONE. [Concomitant]
     Active Substance: RISPERIDONE
     Dosage: AT NIGHT TO MAKE THE DOSE 1M.
     Dates: start: 20200321
  17. PROPRANOLOL [Concomitant]
     Active Substance: PROPRANOLOL HYDROCHLORIDE
     Dates: start: 20200321, end: 20200527
  18. BETAHISTINE [Concomitant]
     Active Substance: BETAHISTINE
     Dates: start: 20200321
  19. GLICLAZIDE [Concomitant]
     Active Substance: GLICLAZIDE
     Dosage: WITH BREAKFAST
     Dates: start: 20200321
  20. BRICANYL [Concomitant]
     Active Substance: TERBUTALINE SULFATE
     Dosage: INHALE 1 OR 2 DOSES 4 TIMES A DAY IF SYMPTOMATIC
     Route: 055
     Dates: start: 20200321
  21. CALCIUM CARBONATE. [Concomitant]
     Active Substance: CALCIUM CARBONATE
     Dates: start: 20200321
  22. ESTRADIOL. [Concomitant]
     Active Substance: ESTRADIOL
     Dosage: FOR TWO WEEKS. MAINTENANCE
     Dates: start: 20200321
  23. TOLTERODINE [Concomitant]
     Active Substance: TOLTERODINE
     Dates: start: 20200503

REACTIONS (1)
  - Electrocardiogram QT prolonged [Recovered/Resolved]

NARRATIVE: CASE EVENT DATE: 20200807
